FAERS Safety Report 20453351 (Version 2)
Quarter: 2022Q1

REPORT INFORMATION
  Report Type: Spontaneous
  Country: US (occurrence: US)
  Receive Date: 20220210
  Receipt Date: 20220322
  Transmission Date: 20220423
  Serious: No
  Sender: FDA-Public Use
  Company Number: US-SA-SAC20220205000530

PATIENT
  Age: 55 Year
  Sex: Female

DRUGS (10)
  1. DUPIXENT [Suspect]
     Active Substance: DUPILUMAB
     Indication: Sinusitis
     Dosage: UNK UNK, QOW
     Route: 058
     Dates: start: 20211021
  2. VIT D [VITAMIN D NOS] [Concomitant]
  3. BUDESONIDE [Concomitant]
     Active Substance: BUDESONIDE
     Dosage: BUDESONIDE RINSE
  4. BLACK COHOSH [Concomitant]
     Active Substance: BLACK COHOSH
  5. FISH OIL [Concomitant]
     Active Substance: FISH OIL
  6. ASCORBIC ACID [Concomitant]
     Active Substance: ASCORBIC ACID
  7. PROAIR HFA [Concomitant]
     Active Substance: ALBUTEROL SULFATE
  8. WIXELA INHUB [Concomitant]
     Active Substance: FLUTICASONE PROPIONATE\SALMETEROL XINAFOATE
  9. MONTELUKAST [Concomitant]
     Active Substance: MONTELUKAST SODIUM
  10. ZYRTEC [Concomitant]
     Active Substance: CETIRIZINE HYDROCHLORIDE

REACTIONS (2)
  - Dizziness [Unknown]
  - Product use in unapproved indication [Unknown]

NARRATIVE: CASE EVENT DATE: 20211021
